FAERS Safety Report 5888315-1 (Version None)
Quarter: 2008Q3

REPORT INFORMATION
  Report Type: 
  Country: None (occurrence: None)
  Receive Date: 20080917
  Receipt Date: 20080904
  Transmission Date: 20090109
  Serious: Yes (Other)
  Sender: FDA-Public Use
  Company Number: PAR_02333_2008

PATIENT
  Sex: Male

DRUGS (2)
  1. IBUPROFEN [Suspect]
     Indication: PAIN
     Dosage: (DF)
  2. CEFACLOR [Suspect]
     Indication: SCARLET FEVER
     Dosage: (DF)

REACTIONS (5)
  - BILIRUBINURIA [None]
  - BLOOD BILIRUBIN INCREASED [None]
  - CHROMATURIA [None]
  - OCULAR ICTERUS [None]
  - TRANSAMINASES INCREASED [None]
